FAERS Safety Report 9692619 (Version 3)
Quarter: 2013Q4

REPORT INFORMATION
  Report Type: Spontaneous
  Country: GB (occurrence: GB)
  Receive Date: 20131118
  Receipt Date: 20131125
  Transmission Date: 20140711
  Serious: Yes (Hospitalization, Other)
  Sender: FDA-Public Use
  Company Number: PHFR2013GB005692

PATIENT
  Age: 48 Year
  Sex: Male

DRUGS (5)
  1. CLOZARIL [Suspect]
     Indication: SCHIZOPHRENIA
     Dosage: 225 MG, DAILY
     Route: 048
     Dates: start: 2005
  2. CLOZARIL [Suspect]
     Dosage: UNK
     Route: 048
     Dates: start: 20070906, end: 20131008
  3. LITHIUM CARBONATE [Concomitant]
     Dosage: 600 MG, DAILY
     Route: 048
  4. SODIUM VALPROATE [Concomitant]
     Indication: MOOD ALTERED
     Dosage: UNK
     Route: 048
  5. LANSOPRAZOLE [Concomitant]
     Dosage: 300 MG, DAILY
     Route: 048

REACTIONS (9)
  - Malaise [Unknown]
  - Vomiting [Unknown]
  - Neutropenia [Recovered/Resolved]
  - Neutrophil count decreased [Recovered/Resolved]
  - White blood cell count decreased [Recovered/Resolved]
  - Platelet count decreased [Recovered/Resolved]
  - White blood cell count increased [Recovered/Resolved]
  - Neutrophil count increased [Recovered/Resolved]
  - Antipsychotic drug level decreased [Unknown]
